FAERS Safety Report 10042288 (Version 2)
Quarter: 2014Q2

REPORT INFORMATION
  Report Type: Spontaneous
  Country: US (occurrence: US)
  Receive Date: 20140327
  Receipt Date: 20140417
  Transmission Date: 20141212
  Serious: Yes (Other)
  Sender: FDA-Public Use
  Company Number: US-ELI_LILLY_AND_COMPANY-US201403007826

PATIENT
  Age: 69 Year
  Sex: Male

DRUGS (13)
  1. CIALIS [Suspect]
     Indication: ERECTILE DYSFUNCTION
     Dosage: 10 MG, PRN
     Route: 065
     Dates: start: 1999
  2. CIALIS [Suspect]
     Indication: BENIGN PROSTATIC HYPERPLASIA
     Dosage: 20 MG, PRN
     Route: 065
  3. CIALIS [Suspect]
     Dosage: 5 MG, QD
     Route: 048
     Dates: start: 20140206
  4. CIALIS [Suspect]
     Dosage: UNK
  5. PLAVIX [Concomitant]
     Dosage: 7 MG, QD
  6. ASPIRIN [Concomitant]
     Dosage: 81 MG, UNKNOWN
  7. ATORVASTATIN [Concomitant]
     Indication: BLOOD CHOLESTEROL
     Dosage: 40 MG, QD
  8. PEPCID COMPLETE                    /00706001/ [Concomitant]
     Dosage: 40 MG, QD
  9. LISINOPRIL [Concomitant]
     Dosage: 5 MG, QD
  10. METOPROLOL [Concomitant]
     Dosage: 200 MG, QD
  11. JANUVIA [Concomitant]
     Dosage: 100 MG, QD
  12. GLIPIZIDE [Concomitant]
     Dosage: 12.5 MG, QD
  13. INSULIN [Concomitant]

REACTIONS (4)
  - Transient ischaemic attack [Recovered/Resolved]
  - Myocardial infarction [Recovered/Resolved]
  - Drug ineffective [Unknown]
  - Off label use [Unknown]
